FAERS Safety Report 5311800-8 (Version None)
Quarter: 2007Q2

REPORT INFORMATION
  Report Type: 
  Country: None (occurrence: None)
  Receive Date: 20070430
  Receipt Date: 20060322
  Transmission Date: 20071010
  Serious: No
  Sender: FDA-Public Use
  Company Number: 2006UW04997

PATIENT
  Age: 76 Year
  Sex: Female

DRUGS (2)
  1. NEXIUM [Suspect]
     Indication: DYSPHAGIA
     Route: 048
     Dates: start: 20060101
  2. ATENOLOL [Concomitant]
     Route: 048

REACTIONS (2)
  - ALOPECIA [None]
  - CONSTIPATION [None]
